FAERS Safety Report 22012828 (Version 2)
Quarter: 2023Q1

REPORT INFORMATION
  Report Type: Spontaneous
  Country: US (occurrence: US)
  Receive Date: 20230220
  Receipt Date: 20230310
  Transmission Date: 20230417
  Serious: Yes (Death, Hospitalization)
  Sender: FDA-Public Use
  Company Number: US-TEVA-2023-US-2857443

PATIENT
  Age: 86 Year
  Sex: Male

DRUGS (8)
  1. LINEZOLID [Suspect]
     Active Substance: LINEZOLID
     Indication: Mycobacterium chelonae infection
     Route: 065
  2. LINEZOLID [Suspect]
     Active Substance: LINEZOLID
     Indication: Sepsis
  3. AZITHROMYCIN [Suspect]
     Active Substance: AZITHROMYCIN
     Indication: Mycobacterium chelonae infection
     Route: 065
  4. AZITHROMYCIN [Suspect]
     Active Substance: AZITHROMYCIN
     Indication: Sepsis
  5. CIPROFLOXACIN [Suspect]
     Active Substance: CIPROFLOXACIN
     Indication: Mycobacterium chelonae infection
     Route: 065
  6. CIPROFLOXACIN [Suspect]
     Active Substance: CIPROFLOXACIN
     Indication: Sepsis
  7. MEROPENEM [Concomitant]
     Active Substance: MEROPENEM
     Indication: Mycobacterium chelonae infection
     Route: 065
  8. MEROPENEM [Concomitant]
     Active Substance: MEROPENEM
     Indication: Sepsis

REACTIONS (1)
  - Drug ineffective [Fatal]
